FAERS Safety Report 5255726-7 (Version None)
Quarter: 2007Q1

REPORT INFORMATION
  Report Type: 
  Country: None (occurrence: None)
  Receive Date: 20070305
  Receipt Date: 20070221
  Transmission Date: 20070707
  Serious: Yes (Death)
  Sender: FDA-Public Use
  Company Number: NO-MERCK-0702NOR00010

PATIENT
  Age: 82 Year
  Sex: Female

DRUGS (3)
  1. ZOCOR [Suspect]
     Route: 048
     Dates: start: 20060301
  2. WARFARIN SODIUM [Suspect]
     Indication: THROMBOSIS PROPHYLAXIS
     Route: 065
  3. ASPIRIN AND MAGNESIUM OXIDE [Suspect]
     Indication: CEREBRAL INFARCTION
     Route: 048
     Dates: start: 20010101

REACTIONS (2)
  - CEREBRAL HAEMORRHAGE [None]
  - DEATH [None]
